FAERS Safety Report 5376599-8 (Version None)
Quarter: 2007Q2

REPORT INFORMATION
  Report Type: 
  Country: None (occurrence: None)
  Receive Date: 20070629
  Receipt Date: 20070625
  Transmission Date: 20071010
  Serious: Yes (Hospitalization, Other)
  Sender: FDA-Public Use
  Company Number: 2007SP006991

PATIENT
  Age: 57 Year
  Sex: Male
  Weight: 38 kg

DRUGS (2)
  1. PEG-INTRON [Suspect]
     Indication: HEPATITIS C
     Dosage: 60 MCG; QW; SC
     Route: 058
     Dates: start: 20061228, end: 20070406
  2. REBETOL [Suspect]
     Indication: HEPATITIS C
     Dosage: 400 MG; QD; PO
     Route: 048
     Dates: start: 20061228, end: 20070411

REACTIONS (5)
  - INTERSTITIAL LUNG DISEASE [None]
  - MYCOPLASMA INFECTION [None]
  - OEDEMA PERIPHERAL [None]
  - SPUTUM CULTURE POSITIVE [None]
  - ULCERATIVE KERATITIS [None]
